FAERS Safety Report 5423761-1 (Version None)
Quarter: 2007Q3

REPORT INFORMATION
  Report Type: 
  Country: None (occurrence: None)
  Receive Date: 20070727
  Receipt Date: 20040402
  Transmission Date: 20080115
  Serious: Yes (Hospitalization)
  Sender: FDA-Public Use
  Company Number: THYM-10060

PATIENT
  Age: 36 Year
  Sex: Female
  Weight: 83.0083 kg

DRUGS (13)
  1. THYMOGLOBULIN [Suspect]
     Indication: RENAL TRANSPLANT
     Dosage: 75 MG
     Dates: start: 20031014, end: 20031015
  2. METOPROLOL SUCCINATE [Concomitant]
  3. ZOLOFT [Concomitant]
  4. NORVASC [Concomitant]
  5. PROGRAF [Concomitant]
  6. VALGANCICLOVIR HCL [Concomitant]
  7. CELLCEPT [Concomitant]
  8. INSULIN [Concomitant]
  9. KEPPRA [Concomitant]
  10. REGLAN [Concomitant]
  11. MYCELEX [Concomitant]
  12. TRIMETHOPRIM [Concomitant]
  13. ATIVAN [Concomitant]

REACTIONS (1)
  - GASTROINTESTINAL HAEMORRHAGE [None]
